FAERS Safety Report 6396096-0 (Version None)
Quarter: 2009Q4

REPORT INFORMATION
  Report Type: 
  Country: None (occurrence: None)
  Receive Date: 20091009
  Receipt Date: 20090925
  Transmission Date: 20100525
  Serious: Yes (Death, Other)
  Sender: FDA-Public Use
  Company Number: BR-GENENTECH-291310

PATIENT
  Age: 80 Year
  Sex: Female

DRUGS (1)
  1. LUCENTIS [Suspect]
     Indication: DIABETIC RETINOPATHY
     Dosage: 10 MG/ML, UNK
     Route: 031

REACTIONS (2)
  - DEATH [None]
  - FEELING ABNORMAL [None]
